FAERS Safety Report 18891914 (Version 1)
Quarter: 2021Q1

REPORT INFORMATION
  Report Type: Spontaneous
  Country: IN (occurrence: IN)
  Receive Date: 20210215
  Receipt Date: 20210215
  Transmission Date: 20210420
  Serious: Yes (Other)
  Sender: FDA-Public Use
  Company Number: IN-ALLERGAN-2106336US

PATIENT
  Sex: Male

DRUGS (1)
  1. TIMOLOL UNK [Suspect]
     Active Substance: TIMOLOL
     Indication: DEVELOPMENTAL GLAUCOMA
     Route: 047

REACTIONS (2)
  - Hypothermia [Unknown]
  - Off label use [Unknown]
